FAERS Safety Report 4266821-3 (Version None)
Quarter: 2004Q1

REPORT INFORMATION
  Report Type: 
  Country: None (occurrence: None)
  Receive Date: 20040108
  Receipt Date: 20030910
  Transmission Date: 20041129
  Serious: No
  Sender: FDA-Public Use
  Company Number: US-GLAXOSMITHKLINE-A0425328A

PATIENT
  Age: 40 Year
  Sex: Female

DRUGS (6)
  1. EPIVIR [Suspect]
     Indication: HIV INFECTION
     Dosage: 300MG PER DAY
     Route: 048
     Dates: start: 20030818
  2. ZIAGEN [Concomitant]
  3. VIRACEPT [Concomitant]
  4. ZOLOFT [Concomitant]
  5. LORAZEPAM [Concomitant]
  6. OXYCONTIN [Concomitant]

REACTIONS (1)
  - ALOPECIA [None]
